FAERS Safety Report 4880586-3 (Version None)
Quarter: 2005Q4

REPORT INFORMATION
  Report Type: 
  Country: None (occurrence: None)
  Receive Date: 20051223
  Receipt Date: 20051118
  Transmission Date: 20060501
  Serious: No
  Sender: FDA-Public Use
  Company Number: 05P-163-0317567-00

PATIENT
  Age: 35 Year
  Sex: Female
  Weight: 61.6892 kg

DRUGS (2)
  1. HUMIRA [Suspect]
     Indication: RHEUMATOID ARTHRITIS
     Dosage: 40 MG, 1 IN 2 WK, SUBCUTANEOUS
     Route: 058
     Dates: start: 20050930
  2. PRE-NATAL VITAMINS [Concomitant]

REACTIONS (1)
  - SMEAR CERVIX ABNORMAL [None]
